FAERS Safety Report 16069530 (Version 4)
Quarter: 2019Q3

REPORT INFORMATION
  Report Type: Spontaneous
  Country: JP (occurrence: JP)
  Receive Date: 20190314
  Receipt Date: 20190905
  Transmission Date: 20191004
  Serious: Yes (Hospitalization)
  Sender: FDA-Public Use
  Company Number: JP-ROCHE-2260721

PATIENT
  Age: 73 Year
  Sex: Male
  Weight: 50 kg

DRUGS (5)
  1. ALIMTA [Concomitant]
     Active Substance: PEMETREXED DISODIUM
     Dosage: DOSAGE IS UNCERTAIN.
     Route: 041
     Dates: start: 20180914, end: 20181005
  2. AVASTIN [Suspect]
     Active Substance: BEVACIZUMAB
     Dosage: DATE OF MOST RECENT DOSE: 05/OCT/2018
     Route: 041
     Dates: start: 20180914
  3. AVASTIN [Suspect]
     Active Substance: BEVACIZUMAB
     Indication: NON-SMALL CELL LUNG CANCER
     Route: 041
     Dates: start: 20180110, end: 20180615
  4. CARBOPLATIN. [Concomitant]
     Active Substance: CARBOPLATIN
     Indication: LUNG ADENOCARCINOMA
     Dosage: DOSAGE IS UNCERTAIN.
     Route: 041
     Dates: start: 20180110, end: 20180615
  5. ALIMTA [Concomitant]
     Active Substance: PEMETREXED DISODIUM
     Indication: NON-SMALL CELL LUNG CANCER
     Dosage: DOSAGE IS UNCERTAIN.
     Route: 041
     Dates: start: 20180110, end: 20180615

REACTIONS (2)
  - Vasculitis [Recovering/Resolving]
  - Physical deconditioning [Unknown]

NARRATIVE: CASE EVENT DATE: 201811
